FAERS Safety Report 5489165-0 (Version None)
Quarter: 2007Q3

REPORT INFORMATION
  Report Type: 
  Country: None (occurrence: None)
  Receive Date: 20070925
  Receipt Date: 20070521
  Transmission Date: 20080115
  Serious: No
  Sender: FDA-Public Use
  Company Number: 2007US001248

PATIENT
  Age: 83 Year
  Sex: Female

DRUGS (7)
  1. VESICARE [Suspect]
     Indication: BLADDER DISCOMFORT
     Dosage: 5 MG, ORAL
     Route: 048
  2. LIPITOR [Concomitant]
  3. PLAVIX [Concomitant]
  4. SELODIPINE [Concomitant]
  5. LEVOTHYROXINE SODIUM [Concomitant]
  6. LISINOPRIL(LISINOPRIL DIHYDRATE) [Concomitant]
  7. ASPIRIN [Concomitant]

REACTIONS (1)
  - DRY MOUTH [None]
